FAERS Safety Report 8851673 (Version 1)
Quarter: 2012Q4

REPORT INFORMATION
  Report Type: 
  Country: US (occurrence: None)
  Receive Date: 20121018
  Receipt Date: 20121018
  Transmission Date: 20130627
  Serious: Yes (Disabling)
  Sender: FDA-Public Use
  Company Number: None

PATIENT
  Age: 51 Year
  Sex: Male
  Weight: 103 kg

DRUGS (16)
  1. BACTRIM [Suspect]
     Indication: STENOTROPHOMONAS INFECTION
     Route: 042
     Dates: start: 20120926, end: 20121007
  2. BACTRIM [Suspect]
     Indication: STENOTROPHOMONAS INFECTION
     Route: 042
  3. CHOLECALCIFEROL [Concomitant]
  4. FLUCONAZOLE [Concomitant]
  5. HYDROCORTISONE [Concomitant]
  6. INSULIN GLARGINE [Concomitant]
  7. FENTANYL CITRATE [Concomitant]
  8. INSULIN LISPRO [Concomitant]
  9. LINEZOLID [Concomitant]
  10. METRONIDAZOLE [Concomitant]
  11. PHYTONADIONE [Concomitant]
  12. PIPERACILLIN-TAZOBACTAM (NO PREF. NAME) [Concomitant]
  13. POTASSIUM CHLORIDE [Concomitant]
  14. SIMVASTATIN [Concomitant]
  15. SUCRAFALT [Concomitant]
  16. VAMCOMYCIN [Concomitant]

REACTIONS (1)
  - Cholestasis [None]
